FAERS Safety Report 4538212-9 (Version None)
Quarter: 2004Q4

REPORT INFORMATION
  Report Type: 
  Country: None (occurrence: None)
  Receive Date: 20041221
  Receipt Date: 20041210
  Transmission Date: 20050328
  Serious: No
  Sender: FDA-Public Use
  Company Number: 2004-123341-NL

PATIENT
  Age: 31 Year
  Sex: Female

DRUGS (1)
  1. CHORIONIC GONADOTROPIN [Suspect]
     Indication: INFERTILITY
     Dosage: DF

REACTIONS (2)
  - RETINAL ARTERY OCCLUSION [None]
  - VISUAL FIELD DEFECT [None]
